FAERS Safety Report 4899445-5 (Version None)
Quarter: 2006Q1

REPORT INFORMATION
  Report Type: 
  Country: None (occurrence: None)
  Receive Date: 20060118
  Receipt Date: 20050614
  Transmission Date: 20060701
  Serious: No
  Sender: FDA-Public Use
  Company Number: 2005001121

PATIENT
  Age: 75 Year
  Sex: Female

DRUGS (9)
  1. TARCEVA [Suspect]
     Indication: RENAL CELL CARCINOMA STAGE UNSPECIFIED
     Dosage: SEE IMAGE
     Route: 048
     Dates: start: 20050601
  2. TARCEVA [Suspect]
     Indication: RENAL CELL CARCINOMA STAGE UNSPECIFIED
     Dosage: SEE IMAGE
     Route: 048
     Dates: start: 20050915
  3. TARCEVA [Suspect]
     Indication: RENAL CELL CARCINOMA STAGE UNSPECIFIED
     Dosage: SEE IMAGE
     Route: 048
     Dates: start: 20051029
  4. AVASTIN (INJECTION FOR INFUSION) [Concomitant]
  5. VERAPAMIL [Concomitant]
  6. TEMAZEPAM [Concomitant]
  7. LORAZEPAM [Concomitant]
  8. VITAMINS (VITAMINS) [Concomitant]
  9. WATER PILL [Concomitant]

REACTIONS (8)
  - CONJUNCTIVITIS [None]
  - DERMATITIS ACNEIFORM [None]
  - DIARRHOEA [None]
  - EPISTAXIS [None]
  - FATIGUE [None]
  - KERATITIS [None]
  - NAUSEA [None]
  - VOMITING [None]
